FAERS Safety Report 9250697 (Version 1)
Quarter: 2013Q2

REPORT INFORMATION
  Report Type: Spontaneous
  Country: US (occurrence: US)
  Receive Date: 20130424
  Receipt Date: 20130424
  Transmission Date: 20140414
  Serious: Yes (Hospitalization)
  Sender: FDA-Public Use
  Company Number: US-009507513-1304USA013838

PATIENT
  Age: 89 Year
  Sex: 0

DRUGS (1)
  1. JANUVIA [Suspect]
     Dosage: 50 MG, QD
     Route: 048

REACTIONS (3)
  - Adverse event [Unknown]
  - Dysphagia [Unknown]
  - Wrong technique in drug usage process [Unknown]
